FAERS Safety Report 6765537-9 (Version None)
Quarter: 2010Q2

REPORT INFORMATION
  Report Type: 
  Country: None (occurrence: None)
  Receive Date: 20100609
  Receipt Date: 20100527
  Transmission Date: 20101027
  Serious: Yes (Hospitalization)
  Sender: FDA-Public Use
  Company Number: 7006472

PATIENT
  Age: 77 Year
  Sex: Female

DRUGS (4)
  1. REBIF [Suspect]
     Indication: MULTIPLE SCLEROSIS
     Dosage: 22 MCG, 2 IN 1 WK, SUBCUTANEOUS
     Route: 058
     Dates: start: 20100312, end: 20100101
  2. REBIF [Suspect]
     Indication: MULTIPLE SCLEROSIS
     Dosage: 22 MCG, 2 IN 1 WK, SUBCUTANEOUS
     Route: 058
     Dates: start: 20100430
  3. DIGOXIN [Concomitant]
  4. METOPROLOL SUCCINATE [Concomitant]

REACTIONS (6)
  - ASTHENIA [None]
  - CONTUSION [None]
  - COORDINATION ABNORMAL [None]
  - FALL [None]
  - SPEECH DISORDER [None]
  - URINARY TRACT INFECTION [None]
